FAERS Safety Report 9985825 (Version 1)
Quarter: 2014Q1

REPORT INFORMATION
  Report Type: Report from Study
  Country: US (occurrence: US)
  Receive Date: 20140307
  Receipt Date: 20140307
  Transmission Date: 20141002
  Serious: No
  Sender: FDA-Public Use
  Company Number: US-ABBVIE-13P-163-1087566-00

PATIENT
  Age: 59 Year
  Sex: Female
  Weight: 95.34 kg

DRUGS (16)
  1. HUMIRA [Suspect]
     Indication: CROHN^S DISEASE
     Dates: start: 2012, end: 201206
  2. HUMIRA [Suspect]
     Indication: PSORIASIS
     Dates: start: 201209, end: 201305
  3. PLAVIX [Concomitant]
     Indication: PRODUCT USED FOR UNKNOWN INDICATION
  4. UNKNOWN BLOOD PRESSURE MEDICATION [Concomitant]
     Indication: BLOOD PRESSURE
  5. HYDROCODONE [Concomitant]
     Indication: PRODUCT USED FOR UNKNOWN INDICATION
  6. DIAZAPEM [Concomitant]
     Indication: NERVOUSNESS
  7. DIAZAPEM [Concomitant]
     Indication: INSOMNIA
  8. LISINOPRIL [Concomitant]
     Indication: BLOOD PRESSURE
  9. AMITRIPTYLINE [Concomitant]
     Indication: BLOOD TRIGLYCERIDES
  10. LASIX [Concomitant]
     Indication: FLUID RETENTION
  11. TRICOR [Concomitant]
     Indication: CARDIAC DISORDER
  12. METFORMIN [Concomitant]
     Indication: DIABETES MELLITUS
  13. ATENOLOL [Concomitant]
     Indication: THYROID DISORDER
  14. NARDIL [Concomitant]
     Indication: NARCOLEPSY
  15. OINTMENTS [Concomitant]
     Indication: PSORIASIS
  16. INSULIN PEN [Concomitant]
     Indication: DIABETES MELLITUS

REACTIONS (9)
  - Weight decreased [Unknown]
  - Diarrhoea [Unknown]
  - Blister [Unknown]
  - Skin exfoliation [Unknown]
  - Pain in extremity [Unknown]
  - Pain in extremity [Unknown]
  - Drug effect decreased [Unknown]
  - Psoriasis [Not Recovered/Not Resolved]
  - Pain [Unknown]
